FAERS Safety Report 23607264 (Version 4)
Quarter: 2024Q4

REPORT INFORMATION
  Report Type: Report from Study
  Country: US (occurrence: US)
  Receive Date: 20240307
  Receipt Date: 20241003
  Transmission Date: 20250114
  Serious: No
  Sender: SANDOZ
  Company Number: US-SANDOZ-SDZ2024US024245

PATIENT
  Sex: Male

DRUGS (4)
  1. OMNITROPE [Suspect]
     Active Substance: SOMATROPIN
     Indication: Short stature
     Dosage: 1.4 MG 2 DOSE EVERY N/A N/A
     Route: 058
  2. OMNITROPE [Suspect]
     Active Substance: SOMATROPIN
     Indication: Short stature
     Dosage: 1.4 MG 2 DOSE EVERY N/A N/A
     Route: 058
  3. OMNITROPE [Suspect]
     Active Substance: SOMATROPIN
     Dosage: 1.4 MG, QD, ONCE DAILY
     Route: 058
  4. OMNITROPE [Suspect]
     Active Substance: SOMATROPIN
     Dosage: 1.4 MG, QD, ONCE DAILY
     Route: 058

REACTIONS (3)
  - Product storage error [Unknown]
  - Product dose omission issue [Unknown]
  - Device leakage [Unknown]
